FAERS Safety Report 20763929 (Version 1)
Quarter: 2022Q2

REPORT INFORMATION
  Report Type: Spontaneous
  Country: CN (occurrence: CN)
  Receive Date: 20220428
  Receipt Date: 20220428
  Transmission Date: 20220721
  Serious: Yes (Other)
  Sender: FDA-Public Use
  Company Number: CN-ELI_LILLY_AND_COMPANY-CN202204010056

PATIENT
  Age: 64 Year
  Sex: Male
  Weight: 64 kg

DRUGS (8)
  1. GEMCITABINE HYDROCHLORIDE [Suspect]
     Active Substance: GEMCITABINE HYDROCHLORIDE
     Indication: Lung neoplasm malignant
     Dosage: 1600 MG, SINGLE
     Route: 041
     Dates: start: 20220401, end: 20220401
  2. CARBOPLATIN [Suspect]
     Active Substance: CARBOPLATIN
     Indication: Lung neoplasm malignant
     Dosage: 550 MG, SINGLE
     Route: 041
     Dates: start: 20220401, end: 20220401
  3. ENDOSTATIN [Suspect]
     Active Substance: ENDOSTATIN
     Indication: Lung neoplasm malignant
     Dosage: 60 MG, SINGLE
     Route: 065
     Dates: start: 20220401, end: 20220401
  4. ENDOSTATIN [Suspect]
     Active Substance: ENDOSTATIN
     Dosage: 75 MG, DAILY
     Route: 065
     Dates: start: 20220402, end: 20220403
  5. SODIUM CHLORIDE [Concomitant]
     Active Substance: SODIUM CHLORIDE
     Indication: Medication dilution
     Dosage: 100 ML, SINGLE
     Route: 041
     Dates: start: 20220401, end: 20220401
  6. SODIUM CHLORIDE [Concomitant]
     Active Substance: SODIUM CHLORIDE
     Dosage: 108 ML, SINGLE
     Route: 065
     Dates: start: 20220401, end: 20220401
  7. SODIUM CHLORIDE [Concomitant]
     Active Substance: SODIUM CHLORIDE
     Dosage: 105 ML, SINGLE
     Route: 065
     Dates: start: 20220402, end: 20220403
  8. DEXTROSE [Concomitant]
     Active Substance: DEXTROSE
     Indication: Medication dilution
     Dosage: 500 ML, SINGLE
     Route: 041
     Dates: start: 20220401, end: 20220401

REACTIONS (2)
  - Hepatic function abnormal [Recovering/Resolving]
  - White blood cell count decreased [Recovering/Resolving]

NARRATIVE: CASE EVENT DATE: 20220405
